FAERS Safety Report 7605226-1 (Version None)
Quarter: 2011Q3

REPORT INFORMATION
  Report Type: 
  Country: None (occurrence: None)
  Receive Date: 20110705
  Receipt Date: 20110623
  Transmission Date: 20111222
  Serious: Yes (Hospitalization)
  Sender: FDA-Public Use
  Company Number: DSJ-2011-09795

PATIENT
  Age: 72 Year
  Sex: Male
  Weight: 52 kg

DRUGS (7)
  1. LANSOPRAZOLE [Suspect]
     Indication: GASTRITIS PROPHYLAXIS
     Dosage: 15 MG (15 MG, 1 IN 1 D), PER ORAL
     Route: 048
     Dates: start: 20110302, end: 20110523
  2. ACETYLSALICYLIC ACID SRT [Concomitant]
  3. ALVESCO [Concomitant]
  4. OLMESARTAN MEDOXOMIL [Suspect]
     Indication: HYPERTENSION
     Dosage: 10 MG (10 MG, 1 IN 1 D), PER ORAL
     Route: 048
     Dates: start: 20110302, end: 20110520
  5. CLOPIDOGREL [Suspect]
     Indication: ACUTE CORONARY SYNDROME
     Dosage: LD/MD=300MG/75MG ( 1 IN 1 D), PER ORAL
     Route: 048
     Dates: start: 20110301, end: 20110520
  6. SITAGLIPTIN PHOSPHATE [Suspect]
     Indication: DIABETES MELLITUS
     Dosage: 25 MG (25 MG, 1 IN 1 D), PER ORAL
     Route: 048
     Dates: start: 20110304, end: 20110520
  7. LIPITOR [Suspect]
     Indication: DYSLIPIDAEMIA
     Dosage: 10 MG (10 MG, 1 IN 1 D), PER ORAL
     Route: 048
     Dates: start: 20110302, end: 20110518

REACTIONS (7)
  - DRUG ERUPTION [None]
  - ALANINE AMINOTRANSFERASE ABNORMAL [None]
  - ECZEMA [None]
  - PRURITUS [None]
  - ASPARTATE AMINOTRANSFERASE ABNORMAL [None]
  - EOSINOPHIL COUNT ABNORMAL [None]
  - GAMMA-GLUTAMYLTRANSFERASE ABNORMAL [None]
